FAERS Safety Report 23692960 (Version 4)
Quarter: 2024Q2

REPORT INFORMATION
  Report Type: Spontaneous
  Country: US (occurrence: US)
  Receive Date: 20240401
  Receipt Date: 20240515
  Transmission Date: 20240716
  Serious: Yes (Other)
  Sender: FDA-Public Use
  Company Number: US-SA-SAC20240329000097

PATIENT
  Age: 12 Year
  Sex: Male

DRUGS (2)
  1. DUPIXENT [Suspect]
     Active Substance: DUPILUMAB
     Indication: Dermatitis atopic
     Dosage: 400 MG, 1X
     Route: 058
     Dates: start: 20240226, end: 20240226
  2. DUPIXENT [Suspect]
     Active Substance: DUPILUMAB
     Indication: Eczema
     Dosage: 200 MG, QOW
     Route: 058
     Dates: start: 20240409

REACTIONS (7)
  - Suicidal ideation [Recovering/Resolving]
  - Anger [Unknown]
  - Sleep disorder due to a general medical condition [Unknown]
  - Mood altered [Unknown]
  - Frustration tolerance decreased [Recovering/Resolving]
  - Eczema [Unknown]
  - Incorrect dose administered [Unknown]

NARRATIVE: CASE EVENT DATE: 20240101
